FAERS Safety Report 14778670 (Version 2)
Quarter: 2018Q3

REPORT INFORMATION
  Report Type: Spontaneous
  Country: US (occurrence: US)
  Receive Date: 20180419
  Receipt Date: 20180719
  Transmission Date: 20181010
  Serious: No
  Sender: FDA-Public Use
  Company Number: US-009507513-1804USA008324

PATIENT
  Age: 44 Year
  Sex: Female

DRUGS (8)
  1. CISPLATIN. [Concomitant]
     Active Substance: CISPLATIN
     Indication: MEDULLOBLASTOMA
     Dosage: UNK, 3 CYCLES
  2. CARBOPLATIN. [Concomitant]
     Active Substance: CARBOPLATIN
     Indication: MEDULLOBLASTOMA
     Dosage: UNK, 6 CYCLES
  3. ISOTRETINOIN. [Concomitant]
     Active Substance: ISOTRETINOIN
     Indication: MEDULLOBLASTOMA
     Dosage: UNK
  4. VINCRISTINE [Concomitant]
     Active Substance: VINCRISTINE
     Indication: MEDULLOBLASTOMA
     Dosage: UNK, 6 CYCLES
  5. ETOPOSIDE. [Concomitant]
     Active Substance: ETOPOSIDE
     Indication: MEDULLOBLASTOMA
     Dosage: UNK, 1 CYCLE
  6. CELECOXIB. [Concomitant]
     Active Substance: CELECOXIB
     Indication: MEDULLOBLASTOMA
     Dosage: UNK, 1 CYCLE
  7. TEMODAR [Suspect]
     Active Substance: TEMOZOLOMIDE
     Indication: MEDULLOBLASTOMA
     Dosage: UNK, 1 CYCLE
     Route: 048
  8. CYCLOPHOSPHAMIDE. [Concomitant]
     Active Substance: CYCLOPHOSPHAMIDE
     Indication: MEDULLOBLASTOMA
     Dosage: UNK

REACTIONS (1)
  - Off label use [Unknown]
